FAERS Safety Report 7825412-5 (Version None)
Quarter: 2011Q4

REPORT INFORMATION
  Report Type: 
  Country: None (occurrence: None)
  Receive Date: 20111019
  Receipt Date: 20110610
  Transmission Date: 20120403
  Serious: Yes (Hospitalization)
  Sender: FDA-Public Use
  Company Number: AU-BAYER-201021796GPV

PATIENT
  Age: 72 Year
  Sex: Male
  Weight: 99.4 kg

DRUGS (11)
  1. PROGOUT [Concomitant]
     Indication: GOUT
     Route: 048
     Dates: start: 20090909
  2. ACETAMINOPHEN [Concomitant]
     Indication: PYREXIA
     Dosage: 2 GRAMS (DAILY DOSE)
     Dates: start: 20100324, end: 20100326
  3. ASPIRIN [Concomitant]
     Indication: DIABETES MELLITUS
     Dosage: 100 MG (DAILY DOSE), QD, ORAL
     Route: 048
     Dates: start: 20090909
  4. LOVAZA [Concomitant]
     Indication: SUPPLEMENTATION THERAPY
     Dosage: 4 DF (DAILY DOSE), QD, ORAL
     Route: 048
     Dates: start: 20050101
  5. DOXORUBICIN HCL [Suspect]
     Indication: HEPATIC NEOPLASM MALIGNANT
  6. PANTOPRAZOLE [Concomitant]
     Indication: GASTROOESOPHAGEAL REFLUX DISEASE
     Dosage: 40 MG (DAILY DOSE), QD, ORAL
     Route: 048
     Dates: start: 20090909
  7. ASPIRIN [Concomitant]
     Indication: CARDIOVASCULAR EVENT PROPHYLAXIS
  8. METOPROLOL TARTRATE [Concomitant]
     Indication: HYPERTENSION
     Route: 048
     Dates: start: 20090909
  9. INSULIN NOVORAPID [Concomitant]
     Indication: DIABETES MELLITUS
     Dosage: 48 IU (DAILY DOSE), , SUBCUTANEOUS
     Route: 058
     Dates: start: 20090909, end: 20100408
  10. SORAFENIB (RAF KINASE INHIBITOR) [Suspect]
     Indication: HEPATIC NEOPLASM MALIGNANT
     Route: 048
     Dates: start: 20100318
  11. ZESTRIL [Concomitant]
     Indication: HYPERTENSION
     Dosage: 20 MG (DAILY DOSE), QD, ORAL
     Route: 048
     Dates: start: 20000101

REACTIONS (11)
  - DIABETES MELLITUS [None]
  - ALANINE AMINOTRANSFERASE INCREASED [None]
  - DYSPEPSIA [None]
  - NEOPLASM PROGRESSION [None]
  - ASPARTATE AMINOTRANSFERASE INCREASED [None]
  - HEPATIC NEOPLASM MALIGNANT [None]
  - FATIGUE [None]
  - LIVER FUNCTION TEST ABNORMAL [None]
  - HYPOGLYCAEMIA [None]
  - ABDOMINAL PAIN [None]
  - BLOOD ALKALINE PHOSPHATASE INCREASED [None]
